FAERS Safety Report 18404750 (Version 1)
Quarter: 2020Q4

REPORT INFORMATION
  Report Type: Spontaneous
  Country: US (occurrence: US)
  Receive Date: 20201020
  Receipt Date: 20201020
  Transmission Date: 20210114
  Serious: Yes (Other)
  Sender: FDA-Public Use
  Company Number: None

PATIENT
  Age: 62 Year
  Sex: Male
  Weight: 81.9 kg

DRUGS (1)
  1. GAMUNEX [Suspect]
     Active Substance: HUMAN IMMUNOGLOBULIN G
     Indication: HYPOGAMMAGLOBULINAEMIA
     Dosage: ?          OTHER FREQUENCY:MONTHLY;?
     Route: 042
     Dates: start: 20090902, end: 20201016

REACTIONS (7)
  - Rash [None]
  - Infusion related reaction [None]
  - Blood pressure increased [None]
  - Rash erythematous [None]
  - Asthenia [None]
  - Abdominal pain [None]
  - Tremor [None]

NARRATIVE: CASE EVENT DATE: 20200919
